FAERS Safety Report 9724936 (Version 2)
Quarter: 2013Q4

REPORT INFORMATION
  Report Type: Report from Study
  Country: US (occurrence: US)
  Receive Date: 20131202
  Receipt Date: 20131205
  Transmission Date: 20140711
  Serious: Yes (Other)
  Sender: FDA-Public Use
  Company Number: US-BAXTER-2013BAX047339

PATIENT
  Sex: Male
  Weight: 75.75 kg

DRUGS (10)
  1. GAMMAGARD LIQUID [Suspect]
     Indication: IMMUNODEFICIENCY COMMON VARIABLE
     Route: 042
  2. GAMMAGARD LIQUID [Suspect]
     Route: 058
  3. GAMMAGARD LIQUID [Suspect]
     Route: 065
     Dates: start: 2010
  4. GAMMAGARD LIQUID [Suspect]
     Route: 065
  5. GAMUNEX [Suspect]
     Indication: IMMUNODEFICIENCY COMMON VARIABLE
     Route: 065
  6. PREDNISONE [Concomitant]
     Indication: PREMEDICATION
     Route: 048
  7. LORATADINE [Concomitant]
     Indication: PREMEDICATION
     Dosage: DAY OF INFUSION
     Route: 048
  8. BENADRYL [Concomitant]
     Indication: PREMEDICATION
     Route: 048
  9. TYLENOL [Concomitant]
     Indication: PREMEDICATION
     Route: 048
  10. ALBUTEROL INHALER [Concomitant]
     Indication: ASTHMA
     Route: 055

REACTIONS (4)
  - Pancreatic disorder [Not Recovered/Not Resolved]
  - Insulin resistance [Not Recovered/Not Resolved]
  - Metabolic syndrome [Not Recovered/Not Resolved]
  - Hepatic steatosis [Not Recovered/Not Resolved]
